FAERS Safety Report 11119145 (Version 1)
Quarter: 2015Q2

REPORT INFORMATION
  Report Type: Spontaneous
  Country: IT (occurrence: IT)
  Receive Date: 20150518
  Receipt Date: 20150518
  Transmission Date: 20150821
  Serious: Yes (Hospitalization)
  Sender: FDA-Public Use
  Company Number: IT-SA-2015SA064748

PATIENT
  Age: 84 Year
  Sex: Female

DRUGS (6)
  1. CARDURA [Concomitant]
     Active Substance: DOXAZOSIN MESYLATE
     Dosage: STRENGTH: 4 MG DOSE:1 UNIT(S)
     Route: 048
  2. FUROSEMIDE. [Suspect]
     Active Substance: FUROSEMIDE
     Indication: OLIGURIA
     Route: 048
     Dates: start: 20150412, end: 20150422
  3. FUROSEMIDE. [Suspect]
     Active Substance: FUROSEMIDE
     Indication: OLIGURIA
     Route: 048
     Dates: start: 20150422, end: 20150422
  4. CIPRALEX [Concomitant]
     Active Substance: ESCITALOPRAM OXALATE
     Route: 048
  5. DROPTIMOL [Concomitant]
     Dosage: DOSE:2 UNIT(S)
     Route: 047
  6. MICARDIS [Concomitant]
     Active Substance: TELMISARTAN
     Dosage: DOSE:1 UNIT(S)
     Route: 048

REACTIONS (3)
  - Malaise [Unknown]
  - Blood pressure increased [Unknown]
  - Hyponatraemia [Unknown]

NARRATIVE: CASE EVENT DATE: 20150422
